FAERS Safety Report 6123959-3 (Version None)
Quarter: 2009Q1

REPORT INFORMATION
  Report Type: 
  Country: None (occurrence: None)
  Receive Date: 20090318
  Receipt Date: 20090318
  Transmission Date: 20090719
  Serious: Yes (Other)
  Sender: FDA-Public Use
  Company Number: None

PATIENT
  Age: 21 Year
  Sex: Female
  Weight: 65.318 kg

DRUGS (1)
  1. VAGISTAT-1 [Suspect]
     Indication: FUNGAL INFECTION
     Dosage: 6.5% ONCE VAG
     Route: 067
     Dates: start: 20090316, end: 20090316

REACTIONS (2)
  - VAGINAL SWELLING [None]
  - VULVOVAGINAL PRURITUS [None]
